FAERS Safety Report 10171598 (Version 1)
Quarter: 2014Q2

REPORT INFORMATION
  Report Type: Spontaneous
  Country: SE (occurrence: None)
  Receive Date: 20140424
  Receipt Date: 20140424
  Transmission Date: 20141212
  Serious: Yes (Hospitalization)
  Sender: FDA-Public Use
  Company Number: 2014-00423

PATIENT
  Age: 9 Year
  Sex: Male

DRUGS (2)
  1. QUETIAPINE [Suspect]
     Indication: BIPOLAR DISORDER
  2. RISPERIDONE (RISPERIDONE) [Concomitant]

REACTIONS (2)
  - Rhabdomyolysis [None]
  - Off label use [None]
